FAERS Safety Report 25198522 (Version 1)
Quarter: 2025Q2

REPORT INFORMATION
  Report Type: Spontaneous
  Country: GB (occurrence: GB)
  Receive Date: 20250415
  Receipt Date: 20250415
  Transmission Date: 20250716
  Serious: Yes (Other)
  Sender: TEVA
  Company Number: GB-JNJFOC-20250389109

PATIENT
  Age: 20 Year
  Sex: Male

DRUGS (1)
  1. RISPERIDONE [Suspect]
     Active Substance: RISPERIDONE
     Indication: Product used for unknown indication
     Route: 065

REACTIONS (8)
  - Suicidal ideation [Unknown]
  - Chest pain [Recovered/Resolved]
  - Palpitations [Unknown]
  - Paralysis [Unknown]
  - Educational problem [Unknown]
  - Asthenia [Unknown]
  - Insomnia [Recovered/Resolved]
  - Brain neoplasm [Unknown]
